FAERS Safety Report 17171114 (Version 1)
Quarter: 2019Q4

REPORT INFORMATION
  Report Type: Spontaneous
  Country: US (occurrence: US)
  Receive Date: 20191218
  Receipt Date: 20191218
  Transmission Date: 20200122
  Serious: Yes (Other)
  Sender: FDA-Public Use
  Company Number: US-SUPERNUS PHARMACEUTICALS, INC.-2019SUP00484

PATIENT
  Sex: Female
  Weight: 58.96 kg

DRUGS (5)
  1. TROKENDI XR [Suspect]
     Active Substance: TOPIRAMATE
     Indication: PARANEOPLASTIC SYNDROME
  2. TROKENDI XR [Suspect]
     Active Substance: TOPIRAMATE
     Indication: TREMOR
     Dosage: 100 MG, 1X/DAY AT NIGHT
     Route: 048
     Dates: end: 201907
  3. TROKENDI XR [Suspect]
     Active Substance: TOPIRAMATE
     Indication: MUSCLE SPASMS
  4. KLONOPIN [Concomitant]
     Active Substance: CLONAZEPAM
     Dosage: 0.25 MG, 1X/DAY AT NIGHT
  5. TROKENDI XR [Suspect]
     Active Substance: TOPIRAMATE
     Indication: NEUROMYOPATHY

REACTIONS (10)
  - Fall [Recovering/Resolving]
  - Weight decreased [Not Recovered/Not Resolved]
  - Balance disorder [Recovering/Resolving]
  - Urinary tract infection [Unknown]
  - Memory impairment [Recovering/Resolving]
  - Nephrolithiasis [Recovered/Resolved]
  - Blood urine present [Unknown]
  - Alopecia [Recovering/Resolving]
  - Off label use [Recovered/Resolved]
  - Insomnia [Recovering/Resolving]

NARRATIVE: CASE EVENT DATE: 2019
